FAERS Safety Report 5954203-5 (Version None)
Quarter: 2008Q4

REPORT INFORMATION
  Report Type: 
  Country: None (occurrence: None)
  Receive Date: 20081113
  Receipt Date: 20081113
  Transmission Date: 20090506
  Serious: Yes (Disabling)
  Sender: FDA-Public Use
  Company Number: None

PATIENT
  Sex: Female
  Weight: 68.9467 kg

DRUGS (1)
  1. FOSAMAX PLUS D [Suspect]
     Indication: OSTEOPOROSIS
     Dosage: 1 PILL 1-WEEK ORAL
     Route: 048
     Dates: start: 20080502, end: 20080602

REACTIONS (3)
  - DYSPHAGIA [None]
  - NO THERAPEUTIC RESPONSE [None]
  - REFLEXES ABNORMAL [None]
